FAERS Safety Report 19832366 (Version 1)
Quarter: 2021Q3

REPORT INFORMATION
  Report Type: Spontaneous
  Country: CA (occurrence: CA)
  Receive Date: 20210914
  Receipt Date: 20210914
  Transmission Date: 20211014
  Serious: Yes (Hospitalization)
  Sender: FDA-Public Use
  Company Number: CA-TEVA-2021-CA-1951779

PATIENT
  Age: 82 Year
  Sex: Male
  Weight: 83 kg

DRUGS (2)
  1. RISPERIDONE. [Concomitant]
     Active Substance: RISPERIDONE
  2. METFORMIN [Suspect]
     Active Substance: METFORMIN HYDROCHLORIDE
     Indication: TYPE 2 DIABETES MELLITUS
     Dosage: 2550 MILLIGRAM DAILY;
     Route: 048

REACTIONS (3)
  - Metabolic encephalopathy [Recovering/Resolving]
  - Lactic acidosis [Recovering/Resolving]
  - Drug dose titration not performed [Recovering/Resolving]
